FAERS Safety Report 22914276 (Version 3)
Quarter: 2023Q4

REPORT INFORMATION
  Report Type: Spontaneous
  Country: GB (occurrence: GB)
  Receive Date: 20230906
  Receipt Date: 20231007
  Transmission Date: 20240110
  Serious: No
  Sender: FDA-Public Use
  Company Number: GB-JNJFOC-20230848761

PATIENT
  Age: 54 Year
  Sex: Male

DRUGS (1)
  1. SIMPONI [Suspect]
     Active Substance: GOLIMUMAB
     Indication: Ankylosing spondylitis
     Dosage: STRENGTH: 100.00 MG/ML
     Route: 058

REACTIONS (3)
  - Device failure [Unknown]
  - Device issue [Unknown]
  - Product dose omission issue [Unknown]
